FAERS Safety Report 12475552 (Version 1)
Quarter: 2016Q2

REPORT INFORMATION
  Report Type: Spontaneous
  Country: US (occurrence: US)
  Receive Date: 20160617
  Receipt Date: 20160617
  Transmission Date: 20160815
  Serious: No
  Sender: FDA-Public Use
  Company Number: US-MYLANLABS-2016M1013772

PATIENT
  Sex: Female

DRUGS (2)
  1. BUDESONIDE CAPSULES [Suspect]
     Active Substance: BUDESONIDE
     Indication: OFF LABEL USE
  2. BUDESONIDE CAPSULES [Suspect]
     Active Substance: BUDESONIDE
     Indication: COLITIS MICROSCOPIC
     Dosage: 9 MG, QD, EVERY MORNING
     Route: 048
     Dates: start: 20151207

REACTIONS (2)
  - Pollakiuria [Not Recovered/Not Resolved]
  - Alopecia [Not Recovered/Not Resolved]

NARRATIVE: CASE EVENT DATE: 20151212
